FAERS Safety Report 5193923-X (Version None)
Quarter: 2006Q4

REPORT INFORMATION
  Report Type: 
  Country: None (occurrence: None)
  Receive Date: 20061222
  Receipt Date: 20061206
  Transmission Date: 20070319
  Serious: Yes (Death)
  Sender: FDA-Public Use
  Company Number: MC200600869

PATIENT
  Age: 75 Year
  Sex: Female
  Weight: 53.5 kg

DRUGS (1)
  1. ANGIOMAX [Suspect]
     Indication: PERCUTANEOUS CORONARY INTERVENTION
     Dosage: SEE IMAGE
     Route: 040
     Dates: start: 20061201, end: 20061201

REACTIONS (2)
  - CORONARY ARTERY PERFORATION [None]
  - PROCEDURAL COMPLICATION [None]
